FAERS Safety Report 5968022-7 (Version None)
Quarter: 2008Q4

REPORT INFORMATION
  Report Type: 
  Country: None (occurrence: None)
  Receive Date: 20081121
  Receipt Date: 20081121
  Transmission Date: 20090506
  Serious: Yes (Other)
  Sender: FDA-Public Use
  Company Number: None

PATIENT
  Age: 4 Year
  Sex: Female
  Weight: 16.3295 kg

DRUGS (2)
  1. VYVANSE [Suspect]
     Indication: ATTENTION DEFICIT/HYPERACTIVITY DISORDER
     Dosage: 20 MG EVERY MORNING PO
     Route: 048
     Dates: start: 20081016, end: 20081020
  2. VYVANSE [Suspect]
     Indication: OCULODENTODIGITAL DYSPLASIA
     Dosage: 20 MG EVERY MORNING PO
     Route: 048
     Dates: start: 20081016, end: 20081020

REACTIONS (4)
  - DYSKINESIA [None]
  - INSOMNIA [None]
  - SOCIAL AVOIDANT BEHAVIOUR [None]
  - TIC [None]
